FAERS Safety Report 8186651-X (Version None)
Quarter: 2012Q1

REPORT INFORMATION
  Report Type: 
  Country: None (occurrence: None)
  Receive Date: 20120305
  Receipt Date: 20120305
  Transmission Date: 20120608
  Serious: Yes (Other)
  Sender: FDA-Public Use
  Company Number: None

PATIENT
  Age: 38 Year
  Sex: Female
  Weight: 61 kg

DRUGS (2)
  1. ROC MULTI CORREXION NIGHT TREATMENT [Suspect]
     Dosage: 1DOSE,1X2-3DAYS, TOPICAL
     Route: 061
     Dates: start: 20120215, end: 20120217
  2. ROC RETINOL CORREXION DEEP WRINKLE NT CRM [Suspect]
     Indication: SKIN WRINKLING
     Dosage: 1 DOSE,1X 2-3NIGHTS, TOPICAL
     Route: 061
     Dates: start: 20120215, end: 20120217

REACTIONS (3)
  - EYELID EXFOLIATION [None]
  - EYELID SKIN DRYNESS [None]
  - EYE SWELLING [None]
